FAERS Safety Report 19416498 (Version 9)
Quarter: 2022Q4

REPORT INFORMATION
  Report Type: Report from Study
  Country: FR (occurrence: FR)
  Receive Date: 20210614
  Receipt Date: 20221102
  Transmission Date: 20230113
  Serious: Yes (Hospitalization, Other)
  Sender: FDA-Public Use
  Company Number: FR-BRISTOL-MYERS SQUIBB COMPANY-BMS-2021-052101

PATIENT
  Age: 68 Year
  Sex: Female
  Weight: 90 kg

DRUGS (18)
  1. IPILIMUMAB [Suspect]
     Active Substance: IPILIMUMAB
     Indication: Renal cell carcinoma
     Dosage: THE MOST RECENT DOSE WAS RECEIVED ON 14-APR-2021?DOSE DELAYED
     Route: 042
     Dates: start: 20210303
  2. BISOPROLOL [Concomitant]
     Active Substance: BISOPROLOL
     Indication: Product used for unknown indication
     Dosage: 1.25 MILLIGRAM
     Route: 048
     Dates: start: 20210516
  3. RACECADOTRIL [Concomitant]
     Active Substance: RACECADOTRIL
     Indication: Diarrhoea
     Route: 048
     Dates: start: 20210403
  4. SMECTA [Concomitant]
     Active Substance: MONTMORILLONITE
     Indication: Diarrhoea
     Route: 048
     Dates: start: 20210403, end: 20210706
  5. LEVOTHYROXINE [Concomitant]
     Active Substance: LEVOTHYROXINE
     Indication: Hypothyroidism
     Route: 048
     Dates: start: 20210420
  6. METOCLOPRAMIDE HYDROCHLORIDE [Concomitant]
     Active Substance: METOCLOPRAMIDE HYDROCHLORIDE
     Indication: Dizziness
     Dosage: 10 MILLIGRAM
     Route: 048
     Dates: start: 20210512
  7. ACETAMINOPHEN [Concomitant]
     Active Substance: ACETAMINOPHEN
     Indication: Dizziness
     Dosage: 1000 MILLIGRAM
     Route: 042
     Dates: start: 20210402, end: 20210402
  8. ACETAMINOPHEN [Concomitant]
     Active Substance: ACETAMINOPHEN
     Dosage: 2000 MILLIGRAM
     Route: 048
     Dates: start: 20210512, end: 20210512
  9. ACETAMINOPHEN [Concomitant]
     Active Substance: ACETAMINOPHEN
     Dosage: 1000 MILLIGRAM
     Route: 048
     Dates: start: 20210513, end: 20210515
  10. ASPIRIN DL-LYSINE [Concomitant]
     Active Substance: ASPIRIN DL-LYSINE
     Indication: Dizziness
     Dosage: 75 MILLIGRAM
     Route: 048
     Dates: start: 20210512, end: 20210517
  11. NICARDIPINE HYDROCHLORIDE [Concomitant]
     Active Substance: NICARDIPINE HYDROCHLORIDE
     Indication: Dizziness
     Dosage: 20 MILLIGRAM
     Route: 048
     Dates: start: 20210516
  12. ACETYLLEUCINE, L- [Concomitant]
     Active Substance: ACETYLLEUCINE, L-
     Indication: Dizziness
     Dosage: 1000 MILLIGRAM
     Route: 048
     Dates: start: 20210511
  13. NICARDIPINE HYDROCHLORIDE [Concomitant]
     Active Substance: NICARDIPINE HYDROCHLORIDE
     Indication: Dizziness
     Dosage: 20 MILLIGRAM
     Route: 048
     Dates: start: 20210517
  14. KARDEGIC [Concomitant]
     Active Substance: ASPIRIN DL-LYSINE
     Indication: Product used for unknown indication
     Dosage: 75 MILLIGRAM
     Route: 048
  15. ARTERIN [Concomitant]
     Indication: Product used for unknown indication
     Route: 048
  16. COVID-19 VACCINE [Concomitant]
     Indication: Prophylaxis
     Route: 030
     Dates: start: 20210503
  17. COVID-19 VACCINE [Concomitant]
     Dosage: UNK
     Route: 030
     Dates: start: 20210531
  18. POTASSIUM CHLORIDE [Concomitant]
     Active Substance: POTASSIUM CHLORIDE
     Indication: Hypokalaemia
     Route: 048
     Dates: start: 20210511

REACTIONS (2)
  - General physical condition abnormal [Recovered/Resolved]
  - Adrenal insufficiency [Recovered/Resolved]

NARRATIVE: CASE EVENT DATE: 20210526
